FAERS Safety Report 8033805-9 (Version None)
Quarter: 2012Q1

REPORT INFORMATION
  Report Type: 
  Country: None (occurrence: None)
  Receive Date: 20120110
  Receipt Date: 20120106
  Transmission Date: 20120608
  Serious: Yes (Death)
  Sender: FDA-Public Use
  Company Number: US-ASTRAZENECA-2012SE01403

PATIENT
  Age: 17 Year
  Sex: Male

DRUGS (8)
  1. MIDAZOLAM [Concomitant]
     Dosage: INCREASED DOSE
     Route: 042
  2. PROPOFOL [Suspect]
     Indication: SEDATION
     Route: 042
  3. MIDAZOLAM [Concomitant]
     Indication: INTRACRANIAL PRESSURE INCREASED
     Route: 042
  4. PROPOFOL [Suspect]
     Indication: INTRACRANIAL PRESSURE INCREASED
     Route: 042
  5. MIDAZOLAM [Concomitant]
     Indication: SEDATION
     Route: 042
  6. MIDAZOLAM [Concomitant]
     Dosage: INCREASED DOSE
     Route: 042
  7. PROPOFOL [Suspect]
     Dosage: INCREASED DOSE
     Route: 042
  8. PROPOFOL [Suspect]
     Dosage: INCREASED DOSE
     Route: 042

REACTIONS (1)
  - PROPOFOL INFUSION SYNDROME [None]
